FAERS Safety Report 8477603-0 (Version None)
Quarter: 2012Q2

REPORT INFORMATION
  Report Type: 
  Country: None (occurrence: None)
  Receive Date: 20120629
  Receipt Date: 20120619
  Transmission Date: 20120825
  Serious: Yes (Hospitalization, Disabling)
  Sender: FDA-Public Use
  Company Number: JP-CELGENEUS-087-50794-12063169

PATIENT
  Sex: Male
  Weight: 47 kg

DRUGS (18)
  1. SELBEX [Concomitant]
     Route: 065
     Dates: start: 20120210, end: 20120530
  2. MAXIPIME [Concomitant]
     Route: 065
     Dates: start: 20120321, end: 20120323
  3. ZOSYN [Concomitant]
     Route: 065
     Dates: start: 20120324, end: 20120327
  4. ZOSYN [Concomitant]
     Route: 065
     Dates: start: 20120414, end: 20120425
  5. EVIPROSTAT [Concomitant]
     Route: 065
  6. ACETAMINOPHEN [Concomitant]
     Route: 065
  7. VANCOMYCIN HYDROCHLORIDE [Concomitant]
     Route: 065
     Dates: start: 20120330, end: 20120412
  8. AMBISOME [Concomitant]
     Route: 065
     Dates: start: 20120223, end: 20120417
  9. FIRSTCIN [Concomitant]
     Route: 065
     Dates: start: 20120318, end: 20120320
  10. VIDAZA [Suspect]
     Indication: MYELODYSPLASTIC SYNDROME
     Dosage: 75 MILLIGRAM/SQ. METER
     Route: 041
     Dates: start: 20120229, end: 20120306
  11. OMEGACIN [Concomitant]
     Route: 065
     Dates: start: 20120220, end: 20120229
  12. CRAVIT [Concomitant]
     Route: 065
     Dates: start: 20120316, end: 20120318
  13. MEROPENEM [Concomitant]
     Route: 065
     Dates: start: 20120409, end: 20120413
  14. OMEPRAZOLE [Concomitant]
     Route: 065
     Dates: start: 20120210
  15. DORIPENEM MONOHYDRATE [Concomitant]
     Route: 065
     Dates: start: 20120301, end: 20120303
  16. FIRSTCIN [Concomitant]
     Route: 065
     Dates: start: 20120304, end: 20120307
  17. MAXIPIME [Concomitant]
     Route: 065
     Dates: start: 20120308, end: 20120315
  18. ITRACONAZOLE [Concomitant]
     Route: 065
     Dates: start: 20120418

REACTIONS (2)
  - PNEUMONIA [None]
  - DISSEMINATED INTRAVASCULAR COAGULATION [None]
